FAERS Safety Report 4998594-0 (Version None)
Quarter: 2006Q2

REPORT INFORMATION
  Report Type: 
  Country: None (occurrence: None)
  Receive Date: 20060509
  Receipt Date: 20060425
  Transmission Date: 20061013
  Serious: No
  Sender: FDA-Public Use
  Company Number: 2006RL000145

PATIENT
  Sex: Female

DRUGS (2)
  1. PROPRANOLOL HYDROCHLORIDE [Suspect]
     Indication: HYPERTENSION
     Dosage: 20 MG, TID; PO, 40 MG, PRN, PO
     Route: 048
  2. NIFEDIPINE [Suspect]
     Indication: PRE-ECLAMPSIA
     Dosage: 20 MG, TID; PO; 10 MG, TID; PO
     Route: 048

REACTIONS (8)
  - BLOOD CREATININE INCREASED [None]
  - CAESAREAN SECTION [None]
  - DRUG EXPOSURE DURING PREGNANCY [None]
  - DRUG INEFFECTIVE [None]
  - HEART RATE INCREASED [None]
  - HYPERTENSION [None]
  - MATERNAL CONDITION AFFECTING FOETUS [None]
  - PRE-ECLAMPSIA [None]
